FAERS Safety Report 26187189 (Version 2)
Quarter: 2025Q4

REPORT INFORMATION
  Report Type: Spontaneous
  Country: US (occurrence: US)
  Receive Date: 20251222
  Receipt Date: 20251229
  Transmission Date: 20260117
  Serious: No
  Sender: ELI LILLY AND COMPANY
  Company Number: US-ELI_LILLY_AND_COMPANY-US202512018211

PATIENT
  Age: 38 Year
  Sex: Female

DRUGS (4)
  1. INSULIN LISPRO [Suspect]
     Active Substance: INSULIN LISPRO
     Indication: Diabetes mellitus
     Dosage: 4 U, UNKNOWN
     Route: 058
     Dates: start: 20250602
  2. INSULIN LISPRO [Suspect]
     Active Substance: INSULIN LISPRO
     Indication: Diabetes mellitus
     Dosage: 4 U, UNKNOWN
     Route: 058
     Dates: start: 20250602
  3. INSULIN LISPRO [Suspect]
     Active Substance: INSULIN LISPRO
     Dosage: UNK UNK, UNKNOWN
     Route: 065
  4. INSULIN LISPRO [Suspect]
     Active Substance: INSULIN LISPRO
     Dosage: UNK UNK, UNKNOWN
     Route: 065

REACTIONS (3)
  - Incorrect dose administered [Unknown]
  - Glycosylated haemoglobin increased [Not Recovered/Not Resolved]
  - Blood glucose increased [Unknown]
